FAERS Safety Report 25304992 (Version 1)
Quarter: 2025Q2

REPORT INFORMATION
  Report Type: Spontaneous
  Country: CN (occurrence: CN)
  Receive Date: 20250513
  Receipt Date: 20250513
  Transmission Date: 20250716
  Serious: Yes (Other)
  Sender: ROCHE
  Company Number: CN-ROCHE-10000277725

PATIENT
  Age: 82 Year
  Sex: Female

DRUGS (3)
  1. RITUXIMAB [Suspect]
     Active Substance: RITUXIMAB
     Indication: Diffuse large B-cell lymphoma
     Route: 065
  2. LENALIDOMIDE [Suspect]
     Active Substance: LENALIDOMIDE
     Indication: Diffuse large B-cell lymphoma
     Route: 065
  3. ZANUBRUTINIB [Suspect]
     Active Substance: ZANUBRUTINIB
     Indication: Diffuse large B-cell lymphoma
     Route: 048

REACTIONS (12)
  - Gingival bleeding [Unknown]
  - Fall [Unknown]
  - Pyrexia [Unknown]
  - Anaemia [Unknown]
  - Platelet count decreased [Unknown]
  - White blood cell count increased [Unknown]
  - Blood lactate dehydrogenase increased [Unknown]
  - Serum ferritin increased [Unknown]
  - Interleukin level increased [Unknown]
  - C-reactive protein increased [Unknown]
  - Pneumonia [Unknown]
  - Acute myeloid leukaemia [Unknown]
